FAERS Safety Report 25392158 (Version 1)
Quarter: 2025Q2

REPORT INFORMATION
  Report Type: Spontaneous
  Country: DK (occurrence: DK)
  Receive Date: 20250603
  Receipt Date: 20250603
  Transmission Date: 20250716
  Serious: Yes (Other)
  Sender: AMGEN
  Company Number: DK-AMGEN-DNKSP2025105016

PATIENT

DRUGS (1)
  1. PROLIA [Suspect]
     Active Substance: DENOSUMAB
     Indication: Infertility male
     Route: 058

REACTIONS (2)
  - Adverse event [Unknown]
  - Adverse reaction [Unknown]
